FAERS Safety Report 13440026 (Version 2)
Quarter: 2017Q2

REPORT INFORMATION
  Report Type: Report from Study
  Country: None (occurrence: US)
  Receive Date: 20170413
  Receipt Date: 20170529
  Transmission Date: 20170830
  Serious: Yes (Hospitalization)
  Sender: FDA-Public Use
  Company Number: US-ABBVIE-17K-163-1938625-00

PATIENT
  Sex: Female

DRUGS (1)
  1. HUMIRA [Suspect]
     Active Substance: ADALIMUMAB
     Indication: CROHN^S DISEASE
     Route: 058

REACTIONS (6)
  - Endotracheal intubation [Unknown]
  - Oropharyngeal discomfort [Unknown]
  - Procedural complication [Unknown]
  - Oxygen saturation increased [Unknown]
  - Dysphonia [Not Recovered/Not Resolved]
  - Memory impairment [Unknown]
